FAERS Safety Report 6749454-6 (Version None)
Quarter: 2010Q2

REPORT INFORMATION
  Report Type: 
  Country: None (occurrence: None)
  Receive Date: 20100601
  Receipt Date: 20100517
  Transmission Date: 20101027
  Serious: Yes (Other)
  Sender: FDA-Public Use
  Company Number: US-PFIZER INC-2010044917

PATIENT
  Sex: Female
  Weight: 63.946 kg

DRUGS (2)
  1. DILANTIN [Suspect]
     Indication: CONVULSION
     Dosage: 300 MG, 1X/DAY
     Route: 048
     Dates: start: 19870101
  2. LORAZEPAM [Concomitant]
     Indication: CONVULSION
     Dosage: UNK

REACTIONS (4)
  - CONVULSION [None]
  - DRUG LEVEL DECREASED [None]
  - DRUG TOXICITY [None]
  - GRAND MAL CONVULSION [None]
